FAERS Safety Report 6134199-6 (Version None)
Quarter: 2009Q1

REPORT INFORMATION
  Report Type: 
  Country: None (occurrence: None)
  Receive Date: 20090326
  Receipt Date: 20090317
  Transmission Date: 20090719
  Serious: Yes (Hospitalization)
  Sender: FDA-Public Use
  Company Number: DK-MERCK-0903DNK00002

PATIENT
  Age: 63 Year
  Sex: Male
  Weight: 80 kg

DRUGS (3)
  1. ZOCOR [Suspect]
     Indication: PROPHYLAXIS
     Route: 048
     Dates: start: 20090201, end: 20090213
  2. ASPIRIN AND DIPYRIDAMOLE [Suspect]
     Indication: THROMBOSIS PROPHYLAXIS
     Route: 048
     Dates: start: 20090201
  3. DICLOXACILLIN SODIUM [Concomitant]
     Route: 048
     Dates: start: 20090201

REACTIONS (2)
  - GOUTY ARTHRITIS [None]
  - MYALGIA [None]
